FAERS Safety Report 12477524 (Version 2)
Quarter: 2016Q3

REPORT INFORMATION
  Report Type: Report from Study
  Country: AU (occurrence: AU)
  Receive Date: 20160617
  Receipt Date: 20160704
  Transmission Date: 20161109
  Serious: Yes (Death, Hospitalization)
  Sender: FDA-Public Use
  Company Number: PHHY2016AU081773

PATIENT
  Age: 60 Year
  Sex: Male

DRUGS (2)
  1. LDK378 [Suspect]
     Active Substance: CERITINIB
     Indication: NON-SMALL CELL LUNG CANCER
     Dosage: 600 MG, QD
     Route: 048
     Dates: start: 20140430
  2. LDK378 [Suspect]
     Active Substance: CERITINIB
     Dosage: UNK
     Route: 048
     Dates: end: 20160320

REACTIONS (3)
  - Non-small cell lung cancer [Fatal]
  - Cerebral disorder [Not Recovered/Not Resolved]
  - Malignant neoplasm progression [Fatal]

NARRATIVE: CASE EVENT DATE: 20160216
